FAERS Safety Report 17212797 (Version 1)
Quarter: 2019Q4

REPORT INFORMATION
  Report Type: Spontaneous
  Country: US (occurrence: US)
  Receive Date: 20191205
  Receipt Date: 20191205
  Transmission Date: 20200122
  Serious: Yes (Hospitalization)
  Sender: FDA-Public Use
  Company Number: None

PATIENT
  Age: 80 Year
  Sex: Female

DRUGS (17)
  1. FORTEO [Suspect]
     Active Substance: TERIPARATIDE
     Indication: OSTEOPOROSIS
     Dosage: ?          OTHER DOSE:600MCG/2.4ML;OTHER ROUTE:3 BY MOUTH DAILY?
     Route: 058
     Dates: start: 20190505
  2. SILDENAFIL 20 MG TAB [Suspect]
     Active Substance: SILDENAFIL
     Indication: PULMONARY ARTERIAL HYPERTENSION
     Route: 048
     Dates: start: 20190706
  3. ASPIRIN. [Concomitant]
     Active Substance: ASPIRIN
  4. OMEPRAZOLE. [Concomitant]
     Active Substance: OMEPRAZOLE
  5. AMOXICILLIN. [Concomitant]
     Active Substance: AMOXICILLIN
  6. ALLOPURINOL. [Concomitant]
     Active Substance: ALLOPURINOL
  7. DULOXETINE. [Concomitant]
     Active Substance: DULOXETINE
  8. FLUTICASONE. [Concomitant]
     Active Substance: FLUTICASONE
  9. LARTADINE [Concomitant]
  10. RANITIDINE. [Concomitant]
     Active Substance: RANITIDINE
  11. VITAMIN D3 [Concomitant]
     Active Substance: CHOLECALCIFEROL
  12. GABAPENTIN. [Concomitant]
     Active Substance: GABAPENTIN
  13. MONTELUKAST [Concomitant]
     Active Substance: MONTELUKAST SODIUM
  14. PRAVASTATIN. [Concomitant]
     Active Substance: PRAVASTATIN
  15. PRESERVISTION [Concomitant]
  16. CALCIUM [Concomitant]
     Active Substance: CALCIUM
  17. MYRBETRIQ [Concomitant]
     Active Substance: MIRABEGRON

REACTIONS (4)
  - Syncope [None]
  - Head injury [None]
  - Eye contusion [None]
  - Fall [None]

NARRATIVE: CASE EVENT DATE: 20191126
